FAERS Safety Report 23311058 (Version 1)
Quarter: 2023Q4

REPORT INFORMATION
  Report Type: Spontaneous
  Country: US (occurrence: US)
  Receive Date: 20231218
  Receipt Date: 20231218
  Transmission Date: 20240110
  Serious: Yes (Death, Other)
  Sender: FDA-Public Use
  Company Number: US-STRIDES ARCOLAB LIMITED-2023SP018794

PATIENT

DRUGS (8)
  1. PREDNISOLONE [Suspect]
     Active Substance: PREDNISOLONE
     Indication: Immunosuppressant drug therapy
     Dosage: UNK
     Route: 065
  2. PREDNISOLONE [Suspect]
     Active Substance: PREDNISOLONE
     Indication: Liver transplant
  3. PREDNISOLONE [Suspect]
     Active Substance: PREDNISOLONE
     Indication: Pancreas transplant
  4. PREDNISOLONE [Suspect]
     Active Substance: PREDNISOLONE
     Indication: Intestinal transplant
  5. ETANERCEPT [Suspect]
     Active Substance: ETANERCEPT
     Indication: Immunosuppressant drug therapy
     Dosage: UNK
     Route: 065
  6. ETANERCEPT [Suspect]
     Active Substance: ETANERCEPT
     Indication: Liver transplant
  7. ETANERCEPT [Suspect]
     Active Substance: ETANERCEPT
     Indication: Pancreas transplant
  8. ETANERCEPT [Suspect]
     Active Substance: ETANERCEPT
     Indication: Intestinal transplant

REACTIONS (6)
  - Septic shock [Fatal]
  - Escherichia infection [Fatal]
  - Klebsiella infection [Fatal]
  - Candida infection [Fatal]
  - Graft versus host disease [Unknown]
  - Graft versus host disease in skin [Unknown]
